FAERS Safety Report 6521762-3 (Version None)
Quarter: 2009Q4

REPORT INFORMATION
  Report Type: 
  Country: None (occurrence: None)
  Receive Date: 20091222
  Receipt Date: 20091214
  Transmission Date: 20100525
  Serious: Yes (Other)
  Sender: FDA-Public Use
  Company Number: DSA_42192_2009

PATIENT
  Sex: Female

DRUGS (13)
  1. XENAZINE [Suspect]
     Indication: TARDIVE DYSKINESIA
     Dosage: (12.5 MG BID ORAL), (1/2 12.5 ,MG TABLET FREQUENCY UNSPECIFIED ORAL)
     Route: 048
     Dates: start: 20091201, end: 20091201
  2. XENAZINE [Suspect]
     Indication: TARDIVE DYSKINESIA
     Dosage: (12.5 MG BID ORAL), (1/2 12.5 ,MG TABLET FREQUENCY UNSPECIFIED ORAL)
     Route: 048
     Dates: start: 20091201, end: 20091212
  3. PRILOSEC [Concomitant]
  4. ZOCOR [Concomitant]
  5. PROZAC [Concomitant]
  6. LISINOPRIL [Concomitant]
  7. GLYBURIDE [Concomitant]
  8. PREDNISONE [Concomitant]
  9. AMBIEN [Concomitant]
  10. TAMOXIFEN CITRATE [Concomitant]
  11. PLAQUENIL [Concomitant]
  12. AMITRIPTYLINE HCL [Concomitant]
  13. REGLAN [Concomitant]

REACTIONS (4)
  - ANURIA [None]
  - FALL [None]
  - HALLUCINATION [None]
  - RENAL FAILURE ACUTE [None]
